FAERS Safety Report 9821066 (Version 1)
Quarter: 2013Q4

REPORT INFORMATION
  Report Type: Spontaneous
  Country: US (occurrence: None)
  Receive Date: 20131028
  Receipt Date: 20131028
  Transmission Date: 20140711
  Serious: Yes (Other)
  Sender: FDA-Public Use
  Company Number: 2013US001706

PATIENT
  Age: 55 Year
  Sex: Female
  Weight: 49 kg

DRUGS (4)
  1. ICLUSIG (PONATINIB) TABLET, 45MG [Suspect]
     Indication: CHRONIC MYELOID LEUKAEMIA
     Route: 048
     Dates: start: 20130129
  2. LEVOTHYROXINE (LEVOTHYROXINE) [Concomitant]
  3. LORTAB (HYDROCODONE BITARTRATE, PARACETAMOL) [Concomitant]
  4. PHENERGAN (PROMETHAZINE) [Concomitant]

REACTIONS (2)
  - Bone pain [None]
  - Myalgia [None]
